FAERS Safety Report 5764573-9 (Version None)
Quarter: 2008Q2

REPORT INFORMATION
  Report Type: 
  Country: None (occurrence: None)
  Receive Date: 20080610
  Receipt Date: 20080529
  Transmission Date: 20081010
  Serious: Yes (Other)
  Sender: FDA-Public Use
  Company Number: NL-PFIZER INC-2008046665

PATIENT
  Age: 71 Year
  Sex: Male
  Weight: 70 kg

DRUGS (2)
  1. LYRICA [Suspect]
     Indication: SYRINGOMYELIA
     Route: 048
  2. BACLOFEN [Concomitant]

REACTIONS (2)
  - PEMPHIGUS [None]
  - PRURITUS GENITAL [None]
